FAERS Safety Report 15876651 (Version 2)
Quarter: 2019Q1

REPORT INFORMATION
  Report Type: Spontaneous
  Country: US (occurrence: US)
  Receive Date: 20190127
  Receipt Date: 20190319
  Transmission Date: 20190417
  Serious: No
  Sender: FDA-Public Use
  Company Number: US-JNJFOC-20190117313

PATIENT
  Age: 89 Year
  Sex: Male

DRUGS (1)
  1. ZYTIGA [Suspect]
     Active Substance: ABIRATERONE ACETATE
     Indication: PRODUCT USED FOR UNKNOWN INDICATION
     Dosage: ZYTIGA 250 MG
     Route: 048
     Dates: end: 20190110

REACTIONS (1)
  - Therapy cessation [Unknown]

NARRATIVE: CASE EVENT DATE: 20190110
